FAERS Safety Report 24967296 (Version 1)
Quarter: 2025Q1

REPORT INFORMATION
  Report Type: Report from Study
  Country: DE (occurrence: DE)
  Receive Date: 20250213
  Receipt Date: 20250213
  Transmission Date: 20250409
  Serious: Yes (Other)
  Sender: UCB
  Company Number: DE-UCBSA-2024024744

PATIENT
  Age: 47 Year
  Sex: Female
  Weight: 87 kg

DRUGS (7)
  1. BIMEKIZUMAB [Suspect]
     Active Substance: BIMEKIZUMAB
     Indication: Axial spondyloarthritis
     Dosage: 160 MILLIGRAM, MONTHLY (QM)
     Route: 058
     Dates: start: 20240208
  2. ETORICOXIB [Concomitant]
     Active Substance: ETORICOXIB
     Indication: Pain
     Route: 048
     Dates: start: 20221221
  3. ETORICOXIB [Concomitant]
     Active Substance: ETORICOXIB
  4. PREDNISOLON STREULI [PREDNISOLONE] [Concomitant]
     Indication: Product used for unknown indication
     Dosage: 30 MILLIGRAM, ONCE DAILY (QD)
     Dates: start: 202411, end: 202411
  5. PREDNISOLON STREULI [PREDNISOLONE] [Concomitant]
     Dosage: 20 MILLIGRAM, ONCE DAILY (QD)
     Dates: start: 202411, end: 202412
  6. PREDNISOLON STREULI [PREDNISOLONE] [Concomitant]
     Dosage: 10 MILLIGRAM, ONCE DAILY (QD)
     Dates: start: 202412, end: 202412
  7. PREDNISOLON STREULI [PREDNISOLONE] [Concomitant]
     Dosage: 7.5 MILLIGRAM, ONCE DAILY (QD)
     Dates: start: 202412

REACTIONS (2)
  - Axial spondyloarthritis [Recovered/Resolved]
  - Back pain [Unknown]

NARRATIVE: CASE EVENT DATE: 20240420
